FAERS Safety Report 24753495 (Version 2)
Quarter: 2025Q3

REPORT INFORMATION
  Report Type: Spontaneous
  Country: EU (occurrence: EU)
  Receive Date: 20241219
  Receipt Date: 20250818
  Transmission Date: 20251020
  Serious: Yes (Death, Other)
  Sender: BRISTOL-MYERS SQUIBB COMPANY
  Company Number: EU-CELGENE-ESP-2016023606

PATIENT
  Age: 68 Year
  Sex: Male

DRUGS (1)
  1. AZACITIDINE [Suspect]
     Active Substance: AZACITIDINE
     Indication: Myelodysplastic syndrome
     Dosage: 75 MILLIGRAM/SQ. METER
     Dates: start: 200706, end: 201507

REACTIONS (1)
  - Systemic candida [Fatal]
